FAERS Safety Report 18440970 (Version 1)
Quarter: 2020Q4

REPORT INFORMATION
  Report Type: Spontaneous
  Country: FR (occurrence: FR)
  Receive Date: 20201029
  Receipt Date: 20201029
  Transmission Date: 20210114
  Serious: Yes (Death, Life-Threatening, Hospitalization, Other)
  Sender: FDA-Public Use
  Company Number: FR-AMGEN-FRASP2020172857

PATIENT

DRUGS (1)
  1. FILGRASTIM [Suspect]
     Active Substance: FILGRASTIM
     Indication: PROPHYLAXIS
     Dosage: UNK
     Route: 065

REACTIONS (10)
  - Respiratory failure [Fatal]
  - Respiratory disorder [Unknown]
  - Pneumonia [Unknown]
  - Fungal infection [Unknown]
  - Pyrexia [Unknown]
  - Unevaluable event [Unknown]
  - Neutropenia [Unknown]
  - Febrile neutropenia [Unknown]
  - Aspergillus infection [Unknown]
  - Infection [Unknown]
